FAERS Safety Report 25839965 (Version 1)
Quarter: 2025Q3

REPORT INFORMATION
  Report Type: Spontaneous
  Country: US (occurrence: US)
  Receive Date: 20250924
  Receipt Date: 20250924
  Transmission Date: 20251021
  Serious: No
  Sender: LUPIN
  Company Number: US-LUPIN PHARMACEUTICALS INC.-2025-08395

PATIENT
  Age: 88 Year
  Weight: 52.154 kg

DRUGS (1)
  1. DULOXETINE [Suspect]
     Active Substance: DULOXETINE
     Indication: Product used for unknown indication
     Dosage: QD (ONCE A DAY)
     Route: 065

REACTIONS (3)
  - Gastrooesophageal reflux disease [Unknown]
  - Product administration error [Unknown]
  - Wrong technique in product usage process [Unknown]
